FAERS Safety Report 4404370-X (Version None)
Quarter: 2004Q3

REPORT INFORMATION
  Report Type: 
  Country: None (occurrence: None)
  Receive Date: 20040719
  Receipt Date: 20040705
  Transmission Date: 20050211
  Serious: Yes (Death)
  Sender: FDA-Public Use
  Company Number: 2004222465FR

PATIENT
  Age: 80 Year
  Sex: Male

DRUGS (8)
  1. XANAX [Suspect]
     Dosage: 0.75 MG DAILY, ORAL
     Route: 048
     Dates: start: 20040325
  2. LOXAPINE SUCCINATE [Suspect]
     Dosage: 3 MG TID, ORAL
     Route: 048
     Dates: start: 20040325
  3. SEROPRAM (CITALOPRAM HYDROBROMIDE) [Suspect]
     Dosage: 20 MG, QD, ORAL
     Route: 048
     Dates: start: 20040325
  4. XATRAL(ALFUZOSIN) [Suspect]
     Dosage: 5 MG, QD, ORAL
     Route: 048
     Dates: start: 20040325
  5. REMINYL [Concomitant]
  6. VALPROATE SODIUM [Concomitant]
  7. XALANTAN [Concomitant]
  8. DI-ANTALVIC (DEXTROPROPOXYPHENE HYDROCHLORIDE) [Concomitant]

REACTIONS (7)
  - AGITATION [None]
  - CEREBRAL HAEMORRHAGE [None]
  - COMA [None]
  - HEADACHE [None]
  - LOSS OF CONSCIOUSNESS [None]
  - MENINGORRHAGIA [None]
  - MYDRIASIS [None]
